FAERS Safety Report 9672070 (Version 1)
Quarter: 2013Q4

REPORT INFORMATION
  Report Type: Report from Study
  Country: CA (occurrence: CA)
  Receive Date: 20131106
  Receipt Date: 20131106
  Transmission Date: 20140711
  Serious: Yes (Other)
  Sender: FDA-Public Use
  Company Number: CA-BAYER-2013-133999

PATIENT
  Age: 46 Year
  Sex: Female

DRUGS (12)
  1. BETASERON [Suspect]
     Indication: MULTIPLE SCLEROSIS
     Dosage: 0.250 MG, UNK
     Dates: start: 20131005
  2. CODEINE [Concomitant]
     Dosage: 9 DF, UNK
  3. BACLOFEN [Concomitant]
  4. HYDROMORPHONE [Concomitant]
     Dosage: 3 MG, UNK
  5. ZOPICLONE [Concomitant]
  6. DIAZEPAM [Concomitant]
  7. LYRICA [Concomitant]
  8. CESAMET [Concomitant]
  9. CLONAZEPAM [Concomitant]
  10. ZANTAC [Concomitant]
  11. RABEPRAZOLE [Concomitant]
     Dosage: 20 MG, UNK
  12. MARIJUANA [Concomitant]

REACTIONS (2)
  - Breath holding [Not Recovered/Not Resolved]
  - Anxiety [Not Recovered/Not Resolved]
